FAERS Safety Report 5975521-0 (Version None)
Quarter: 2008Q4

REPORT INFORMATION
  Report Type: 
  Country: None (occurrence: None)
  Receive Date: 20081202
  Receipt Date: 20080429
  Transmission Date: 20090506
  Serious: No
  Sender: FDA-Public Use
  Company Number: A0726142A

PATIENT
  Age: 29 Year
  Sex: Male

DRUGS (1)
  1. AUGMENTIN '125' [Suspect]
     Indication: TONSILLITIS
     Dosage: 675MG THREE TIMES PER DAY
     Route: 048
     Dates: start: 20080419, end: 20080426

REACTIONS (1)
  - RASH PRURITIC [None]
